FAERS Safety Report 23774161 (Version 2)
Quarter: 2025Q2

REPORT INFORMATION
  Report Type: Spontaneous
  Country: JP (occurrence: JP)
  Receive Date: 20240423
  Receipt Date: 20250612
  Transmission Date: 20250717
  Serious: Yes (Hospitalization)
  Sender: TEVA
  Company Number: JP-TEVA-VS-3182944

PATIENT
  Age: 48 Year
  Sex: Female

DRUGS (3)
  1. FAMOTIDINE [Suspect]
     Active Substance: FAMOTIDINE
     Indication: Abdominal pain upper
     Dosage: DOSAGE IS UNKNOWN
     Route: 048
  2. Clostridium butyricum [Concomitant]
     Indication: Product used for unknown indication
     Route: 048
  3. LOPERAMIDE HYDROCHLORIDE [Concomitant]
     Active Substance: LOPERAMIDE HYDROCHLORIDE
     Indication: Product used for unknown indication
     Route: 048

REACTIONS (4)
  - Diarrhoea [Recovered/Resolved]
  - Intestinal fibrosis [Unknown]
  - Inflammation [Unknown]
  - Weight decreased [Unknown]
